FAERS Safety Report 14425787 (Version 1)
Quarter: 2018Q1

REPORT INFORMATION
  Report Type: Spontaneous
  Country: US (occurrence: US)
  Receive Date: 20180123
  Receipt Date: 20180123
  Transmission Date: 20180509
  Serious: Yes (Death)
  Sender: FDA-Public Use
  Company Number: PHHY2018US010568

PATIENT
  Age: 6 Year
  Sex: Female

DRUGS (3)
  1. DEFIBROTIDE [Suspect]
     Active Substance: DEFIBROTIDE (BOVINE)
     Indication: VENOOCCLUSIVE DISEASE
     Dosage: 6.25 MG/KG, Q6H
     Route: 065
  2. METHYLPREDNISOLONE. [Suspect]
     Active Substance: METHYLPREDNISOLONE
     Dosage: 2 MG/KG, QD
     Route: 042
  3. METHYLPREDNISOLONE. [Suspect]
     Active Substance: METHYLPREDNISOLONE
     Indication: VENOOCCLUSIVE DISEASE
     Dosage: 500 MG/M2, Q12H
     Route: 042

REACTIONS (3)
  - Product use in unapproved indication [Unknown]
  - Venoocclusive disease [Fatal]
  - Therapy non-responder [Unknown]
